FAERS Safety Report 7644654-5 (Version None)
Quarter: 2011Q3

REPORT INFORMATION
  Report Type: 
  Country: None (occurrence: None)
  Receive Date: 20110729
  Receipt Date: 20110726
  Transmission Date: 20111222
  Serious: Yes (Death)
  Sender: FDA-Public Use
  Company Number: US-AMGEN-USASP2011038187

PATIENT
  Age: 74 Year
  Sex: Female

DRUGS (2)
  1. NPLATE [Suspect]
     Indication: MULTIPLE MYELOMA
     Dates: end: 20110321
  2. NPLATE [Suspect]
     Indication: THROMBOCYTOPENIA

REACTIONS (3)
  - DISEASE PROGRESSION [None]
  - THROMBOCYTOPENIA [None]
  - MULTIPLE MYELOMA [None]
